FAERS Safety Report 18352467 (Version 7)
Quarter: 2023Q2

REPORT INFORMATION
  Report Type: Report from Study
  Country: US (occurrence: US)
  Receive Date: 20201006
  Receipt Date: 20230425
  Transmission Date: 20230721
  Serious: Yes (Hospitalization, Other)
  Sender: FDA-Public Use
  Company Number: NVSC2020US269927

PATIENT
  Sex: Female

DRUGS (1)
  1. ENTRESTO [Suspect]
     Active Substance: SACUBITRIL\VALSARTAN
     Indication: Cardiac failure chronic
     Dosage: UNK
     Route: 065

REACTIONS (9)
  - Myocardial infarction [Unknown]
  - Bacterial infection [Unknown]
  - Clostridium difficile infection [Unknown]
  - Cardiac failure [Unknown]
  - Renal failure [Unknown]
  - Acute kidney injury [Unknown]
  - Hypoacusis [Unknown]
  - Dehydration [Unknown]
  - Diarrhoea [Unknown]
